FAERS Safety Report 13673542 (Version 1)
Quarter: 2017Q2

REPORT INFORMATION
  Report Type: Spontaneous
  Country: US (occurrence: US)
  Receive Date: 20170621
  Receipt Date: 20170621
  Transmission Date: 20170830
  Serious: No
  Sender: FDA-Public Use
  Company Number: US-TEVA-731626ACC

PATIENT
  Sex: Male

DRUGS (1)
  1. HYDROCRM-A [Suspect]
     Active Substance: HYDROCORTISONE
     Indication: POISONING
     Dates: start: 201611, end: 201611

REACTIONS (1)
  - Rash [Recovering/Resolving]
